FAERS Safety Report 17812243 (Version 1)
Quarter: 2020Q2

REPORT INFORMATION
  Report Type: Spontaneous
  Country: US (occurrence: US)
  Receive Date: 20200521
  Receipt Date: 20200521
  Transmission Date: 20200714
  Serious: Yes (Death)
  Sender: FDA-Public Use
  Company Number: None

PATIENT
  Age: 73 Year
  Sex: Male
  Weight: 122.8 kg

DRUGS (20)
  1. APIXABAN [Concomitant]
     Active Substance: APIXABAN
     Dates: start: 20200509, end: 20200515
  2. DOCUSATE [Concomitant]
     Active Substance: DOCUSATE
     Dates: start: 20200509, end: 20200516
  3. SARILUMAB [Concomitant]
     Active Substance: SARILUMAB
     Dates: start: 20200515, end: 20200515
  4. SENNOSIDES. [Concomitant]
     Active Substance: SENNOSIDES
     Dates: start: 20200514, end: 20200516
  5. FINASTERIDE. [Concomitant]
     Active Substance: FINASTERIDE
     Dates: start: 20200509, end: 20200516
  6. ASCORBIC ACID. [Concomitant]
     Active Substance: ASCORBIC ACID
     Dates: start: 20200512, end: 20200516
  7. FERROUS SULFATE. [Concomitant]
     Active Substance: FERROUS SULFATE
     Dates: start: 20200509, end: 20200516
  8. TAMSULOSIN [Concomitant]
     Active Substance: TAMSULOSIN
     Dates: start: 20200509, end: 20200516
  9. ROPINOROLE [Concomitant]
     Active Substance: ROPINIROLE
     Dates: start: 20200509, end: 20200516
  10. POLYETHEYLENE GLYCOL [Concomitant]
     Dates: start: 20200514, end: 20200516
  11. BISACODYL. [Concomitant]
     Active Substance: BISACODYL
     Dates: start: 20200513, end: 20200516
  12. HYDRALAZINE [Concomitant]
     Active Substance: HYDRALAZINE HYDROCHLORIDE
     Dates: start: 20200509, end: 20200516
  13. METOPROLOL. [Concomitant]
     Active Substance: METOPROLOL
     Dates: start: 20200509, end: 20200516
  14. REMDESIVIR. [Suspect]
     Active Substance: REMDESIVIR
     Indication: COVID-19
     Route: 042
     Dates: start: 20200512, end: 20200516
  15. FUROSEMIDE. [Concomitant]
     Active Substance: FUROSEMIDE
     Dates: start: 20200509, end: 20200516
  16. PAROXETINE. [Concomitant]
     Active Substance: PAROXETINE
     Dates: start: 20200509, end: 20200516
  17. ZINC SULFATE. [Concomitant]
     Active Substance: ZINC SULFATE
     Dates: start: 20200513, end: 20200516
  18. CARBIDOPA/LEVODOPA [Concomitant]
     Active Substance: CARBIDOPA\LEVODOPA
     Dates: start: 20200509, end: 20200516
  19. LOSARTAN. [Concomitant]
     Active Substance: LOSARTAN
     Dates: start: 20200509, end: 20200516
  20. PANTOPRAZOLE [Concomitant]
     Active Substance: PANTOPRAZOLE
     Dates: start: 20200509, end: 20200516

REACTIONS (1)
  - Death [None]

NARRATIVE: CASE EVENT DATE: 20200516
